FAERS Safety Report 5157521-6 (Version None)
Quarter: 2006Q4

REPORT INFORMATION
  Report Type: 
  Country: None (occurrence: None)
  Receive Date: 20061127
  Receipt Date: 20061027
  Transmission Date: 20070319
  Serious: Yes (Hospitalization)
  Sender: FDA-Public Use
  Company Number: JP-GLAXOSMITHKLINE-B0444832A

PATIENT
  Age: 2 Year
  Sex: Female
  Weight: 10.8 kg

DRUGS (4)
  1. CLAVAMOX [Suspect]
     Indication: CHALAZION
     Route: 048
     Dates: start: 20060131, end: 20060206
  2. GATIFLO [Concomitant]
     Route: 031
     Dates: start: 20051101
  3. FLOMOX [Concomitant]
     Indication: CHALAZION
     Route: 048
     Dates: start: 20060115, end: 20060130
  4. FAMOTIDINE [Concomitant]
     Indication: GASTRIC ULCER
     Dosage: 5MG PER DAY
     Route: 042
     Dates: start: 20060210, end: 20060215

REACTIONS (6)
  - DECREASED APPETITE [None]
  - DRUG ERUPTION [None]
  - GENERALISED ERYTHEMA [None]
  - INFECTIOUS MONONUCLEOSIS [None]
  - MOUTH ULCERATION [None]
  - PYREXIA [None]
